FAERS Safety Report 25932461 (Version 2)
Quarter: 2025Q4

REPORT INFORMATION
  Report Type: Spontaneous
  Country: US (occurrence: US)
  Receive Date: 20251017
  Receipt Date: 20251202
  Transmission Date: 20260118
  Serious: No
  Sender: SANOFI AVENTIS
  Company Number: US-SA-2025SA307469

PATIENT
  Age: 40 Year
  Sex: Male

DRUGS (6)
  1. DUPIXENT [Suspect]
     Active Substance: DUPILUMAB
     Indication: Steatohepatitis
     Dosage: 300 MG, QOW
     Route: 058
     Dates: start: 20241116
  2. DUPIXENT [Suspect]
     Active Substance: DUPILUMAB
     Indication: Metabolic dysfunction-associated steatohepatitis
  3. REZDIFFRA [Suspect]
     Active Substance: RESMETIROM
     Dosage: UNK
  4. BUPROPION [Concomitant]
     Active Substance: BUPROPION
     Dosage: UNK
  5. MINOCYCLINE HYDROCHLORIDE [Concomitant]
     Active Substance: MINOCYCLINE HYDROCHLORIDE
     Dosage: UNK
  6. PENICILLAMINE [Concomitant]
     Active Substance: PENICILLAMINE
     Dosage: UNK

REACTIONS (5)
  - Depression [Unknown]
  - Diarrhoea [Unknown]
  - Hepatic enzyme increased [Unknown]
  - Pruritus [Unknown]
  - Product use in unapproved indication [Unknown]

NARRATIVE: CASE EVENT DATE: 20241116
